FAERS Safety Report 17828045 (Version 2)
Quarter: 2022Q2

REPORT INFORMATION
  Report Type: Spontaneous
  Country: US (occurrence: US)
  Receive Date: 20200527
  Receipt Date: 20220425
  Transmission Date: 20220720
  Serious: No
  Sender: FDA-Public Use
  Company Number: US-MYLANLABS-2020M1050545

PATIENT
  Age: 43 Year
  Sex: Male
  Weight: 72.57 kg

DRUGS (2)
  1. HALOPERIDOL [Suspect]
     Active Substance: HALOPERIDOL
     Indication: Aggression
     Dosage: UNK, QD
     Route: 048
  2. HALOPERIDOL [Suspect]
     Active Substance: HALOPERIDOL
     Indication: Autism spectrum disorder
     Dosage: 1 MILLIGRAM (0.5 MG )
     Route: 048
     Dates: start: 2012

REACTIONS (6)
  - Testicular swelling [Not Recovered/Not Resolved]
  - Infection [Recovering/Resolving]
  - Testicular mass [Not Recovered/Not Resolved]
  - Appetite disorder [Recovered/Resolved]
  - Pruritus [Not Recovered/Not Resolved]
  - Ulcer [Not Recovered/Not Resolved]

NARRATIVE: CASE EVENT DATE: 20200318
